FAERS Safety Report 7219421-7 (Version None)
Quarter: 2011Q1

REPORT INFORMATION
  Report Type: 
  Country: None (occurrence: None)
  Receive Date: 20110111
  Receipt Date: 20110103
  Transmission Date: 20110831
  Serious: Yes (Hospitalization)
  Sender: FDA-Public Use
  Company Number: BR-MEDIMMUNE-MEDI-0012143

PATIENT
  Sex: Female
  Weight: 7.66 kg

DRUGS (2)
  1. SYNAGIS [Suspect]
     Route: 030
     Dates: start: 20100619, end: 20100619
  2. SYNAGIS [Suspect]
     Indication: RESPIRATORY DISORDER

REACTIONS (4)
  - PNEUMONIA [None]
  - BRONCHIOLITIS [None]
  - NASOPHARYNGITIS [None]
  - BRONCHOPULMONARY DYSPLASIA [None]
